FAERS Safety Report 6855707-3 (Version None)
Quarter: 2010Q3

REPORT INFORMATION
  Report Type: 
  Country: None (occurrence: None)
  Receive Date: 20100719
  Receipt Date: 20100422
  Transmission Date: 20110219
  Serious: No
  Sender: FDA-Public Use
  Company Number: US-KINGPHARMUSA00001-K201000502

PATIENT
  Sex: Female
  Weight: 87.528 kg

DRUGS (1)
  1. LEVOXYL [Suspect]
     Indication: THYROIDECTOMY
     Dosage: 175 MCG QD FOR 6 DAYS AND 87.5 MCG (ONE HLAF OF 175 MCG TABLET) ON THE 7TH DAY
     Route: 048
     Dates: start: 20090101

REACTIONS (6)
  - FATIGUE [None]
  - FLUID RETENTION [None]
  - OEDEMA PERIPHERAL [None]
  - SWELLING [None]
  - SWELLING FACE [None]
  - WEIGHT INCREASED [None]
